FAERS Safety Report 8508756-3 (Version None)
Quarter: 2012Q3

REPORT INFORMATION
  Report Type: 
  Country: None (occurrence: None)
  Receive Date: 20120713
  Receipt Date: 20120703
  Transmission Date: 20120928
  Serious: No
  Sender: FDA-Public Use
  Company Number: TR-JNJFOC-20120702468

PATIENT
  Sex: Male

DRUGS (1)
  1. REMICADE [Suspect]
     Indication: RHEUMATOID ARTHRITIS
     Route: 042
     Dates: start: 20100101

REACTIONS (4)
  - ARTHRALGIA [None]
  - INFECTION [None]
  - GASTROINTESTINAL PAIN [None]
  - MUSCULOSKELETAL STIFFNESS [None]
